FAERS Safety Report 11426835 (Version 5)
Quarter: 2016Q2

REPORT INFORMATION
  Report Type: Spontaneous
  Country: US (occurrence: US)
  Receive Date: 20150827
  Receipt Date: 20160420
  Transmission Date: 20160815
  Serious: Yes (Hospitalization, Other)
  Sender: FDA-Public Use
  Company Number: US-ABBVIE-15P-163-1450145-00

PATIENT
  Sex: Female
  Weight: 59 kg

DRUGS (12)
  1. TRILEPTAL [Suspect]
     Active Substance: OXCARBAZEPINE
     Indication: SEIZURE
     Route: 048
     Dates: start: 2011, end: 2012
  2. THORAZINE [Concomitant]
     Active Substance: CHLORPROMAZINE
     Indication: PRODUCT USED FOR UNKNOWN INDICATION
  3. ZONISAMIDE. [Suspect]
     Active Substance: ZONISAMIDE
     Indication: SEIZURE
     Dosage: WEANING OFF
     Route: 065
  4. ASPIRIN. [Concomitant]
     Active Substance: ASPIRIN
     Indication: PRODUCT USED FOR UNKNOWN INDICATION
  5. NEURONTIN [Suspect]
     Active Substance: GABAPENTIN
     Indication: SEIZURE
     Route: 048
     Dates: end: 2012
  6. LAMOTRIGINE. [Suspect]
     Active Substance: LAMOTRIGINE
     Route: 048
  7. VIMPAT [Suspect]
     Active Substance: LACOSAMIDE
     Indication: SEIZURE
     Route: 065
  8. LAMOTRIGINE. [Suspect]
     Active Substance: LAMOTRIGINE
     Indication: SEIZURE
     Dosage: POSSIBLY TWICE DAILY
     Route: 048
     Dates: start: 2010, end: 2011
  9. LAMICTAL [Suspect]
     Active Substance: LAMOTRIGINE
     Indication: SEIZURE
     Route: 065
  10. NITROGLYCERIN. [Concomitant]
     Active Substance: NITROGLYCERIN
     Indication: PRODUCT USED FOR UNKNOWN INDICATION
  11. SEROQUEL [Suspect]
     Active Substance: QUETIAPINE FUMARATE
     Indication: DEPRESSION
     Route: 065
  12. DEPAKOTE [Suspect]
     Active Substance: DIVALPROEX SODIUM
     Indication: SEIZURE
     Dosage: LOW DOSE
     Route: 065

REACTIONS (50)
  - Increased tendency to bruise [Unknown]
  - Balance disorder [Unknown]
  - Diplopia [Not Recovered/Not Resolved]
  - Haemorrhage [Unknown]
  - Myocardial infarction [Unknown]
  - Mania [Unknown]
  - Insomnia [Not Recovered/Not Resolved]
  - Laceration [Unknown]
  - Urine output decreased [Unknown]
  - Urine abnormality [Unknown]
  - Logorrhoea [Unknown]
  - Abdominal discomfort [Unknown]
  - Seizure [Not Recovered/Not Resolved]
  - Cognitive disorder [Recovering/Resolving]
  - Joint injury [Unknown]
  - Amnesia [Unknown]
  - Loss of consciousness [Unknown]
  - Fall [Unknown]
  - Irritability [Unknown]
  - Confusional state [Unknown]
  - Pallor [Unknown]
  - Strabismus [Unknown]
  - Bladder pain [Unknown]
  - Bipolar disorder [Unknown]
  - Depression [Unknown]
  - Nausea [Unknown]
  - Fatigue [Unknown]
  - Seizure [Not Recovered/Not Resolved]
  - Fall [Unknown]
  - Pollakiuria [Unknown]
  - Menopause [Unknown]
  - Asthenia [Unknown]
  - Constipation [Unknown]
  - Psychotic disorder [Unknown]
  - Micturition urgency [Unknown]
  - Seizure [Recovered/Resolved]
  - Seizure [Unknown]
  - Coordination abnormal [Unknown]
  - Dizziness [Unknown]
  - Chest pain [Unknown]
  - Alopecia [Unknown]
  - Muscular weakness [Unknown]
  - Tremor [Unknown]
  - Wound haemorrhage [Unknown]
  - Hyperhidrosis [Unknown]
  - Cognitive disorder [Unknown]
  - Drug ineffective [Unknown]
  - Vomiting [Unknown]
  - Disturbance in attention [Unknown]
  - Contusion [Unknown]

NARRATIVE: CASE EVENT DATE: 2010
